FAERS Safety Report 5854766-4 (Version None)
Quarter: 2008Q3

REPORT INFORMATION
  Report Type: 
  Country: None (occurrence: None)
  Receive Date: 20080822
  Receipt Date: 20071109
  Transmission Date: 20090109
  Serious: No
  Sender: FDA-Public Use
  Company Number: US-ABBOTT-08P-163-0432165-00

PATIENT
  Sex: Female
  Weight: 48.578 kg

DRUGS (7)
  1. SYNTHROID [Suspect]
     Indication: HYPOTHYROIDISM
     Route: 048
     Dates: start: 19970101, end: 20071201
  2. SYNTHROID [Suspect]
     Route: 048
     Dates: start: 20071201
  3. ATORVASTATIN CALCIUM [Concomitant]
     Indication: BLOOD CHOLESTEROL
     Route: 048
     Dates: start: 20060101
  4. PRENAVIL [Concomitant]
     Indication: BLOOD PRESSURE
     Route: 048
  5. IBUPROFEN [Concomitant]
     Indication: NECK PAIN
     Route: 048
  6. VICODIN [Concomitant]
     Indication: NECK PAIN
     Route: 048
  7. HYDROCHLOROTHIAZIDE [Concomitant]
     Indication: DIURETIC THERAPY
     Route: 048

REACTIONS (1)
  - BLOOD THYROID STIMULATING HORMONE DECREASED [None]
